FAERS Safety Report 11739994 (Version 3)
Quarter: 2015Q4

REPORT INFORMATION
  Report Type: Report from Study
  Country: FR (occurrence: FR)
  Receive Date: 20151113
  Receipt Date: 20151221
  Transmission Date: 20160304
  Serious: Yes (Death, Hospitalization, Other)
  Sender: FDA-Public Use
  Company Number: FR-ABBVIE-15P-056-1498395-00

PATIENT
  Age: 70 Year
  Sex: Male
  Weight: 100 kg

DRUGS (1)
  1. DUODOPA [Suspect]
     Active Substance: CARBIDOPA\LEVODOPA
     Indication: PARKINSON^S DISEASE
     Route: 065

REACTIONS (5)
  - Death [Fatal]
  - Hypoxia [Recovering/Resolving]
  - Pneumonia [Recovering/Resolving]
  - Cardiac arrest [Unknown]
  - Aspiration [Unknown]

NARRATIVE: CASE EVENT DATE: 201510
